FAERS Safety Report 20789630 (Version 3)
Quarter: 2022Q3

REPORT INFORMATION
  Report Type: Report from Study
  Country: US (occurrence: US)
  Receive Date: 20220505
  Receipt Date: 20220721
  Transmission Date: 20221026
  Serious: Yes (Hospitalization)
  Sender: FDA-Public Use
  Company Number: US-SAREPTA THERAPEUTICS INC.-SRP2022-002205

PATIENT

DRUGS (15)
  1. GOLODIRSEN [Suspect]
     Active Substance: GOLODIRSEN
     Indication: Duchenne muscular dystrophy
     Dosage: 100 MILLIGRAM / 2ML
     Route: 042
  2. VITAMIN C [Concomitant]
     Active Substance: ASCORBIC ACID
     Indication: Nutritional supplementation
     Dosage: 250 MILLIGRAM, QD
     Route: 048
  3. BIOTIN [Concomitant]
     Active Substance: BIOTIN
     Indication: Dry skin
     Dosage: 10 MILLIGRAM, QD
     Route: 048
     Dates: start: 20220316
  4. CALCIUM [Concomitant]
     Active Substance: CALCIUM
     Indication: Mineral supplementation
     Dosage: 1500 MILLIGRAM
     Route: 048
     Dates: start: 20140430
  5. COREG [Concomitant]
     Active Substance: CARVEDILOL
     Indication: Cardiomyopathy
     Dosage: 6.25 MILLIGRAM, QD, 2 TIMES
     Route: 048
     Dates: start: 20220418
  6. VITAMIN D3 [Concomitant]
     Active Substance: CHOLECALCIFEROL
     Indication: Vitamin supplementation
     Dosage: 50 MICROGRAM, QD
     Route: 048
     Dates: start: 20220301
  7. CATAPRES [Concomitant]
     Active Substance: CLONIDINE HYDROCHLORIDE
     Indication: Sleep disorder
     Dosage: 0.1 MILLIGRAM, QD
     Route: 048
     Dates: start: 20220411
  8. CERAVE HEALING [Concomitant]
     Active Substance: PETROLATUM
     Indication: Dry skin
     Dosage: UNK UNK, BID
     Route: 061
     Dates: start: 20200411
  9. LEXAPRO [Concomitant]
     Active Substance: ESCITALOPRAM OXALATE
     Indication: Mood altered
     Dosage: 10 MILLIGRAM, QD
     Dates: start: 20220411
  10. EMLA [Concomitant]
     Active Substance: LIDOCAINE\PRILOCAINE
     Indication: Analgesic therapy
     Dosage: UNK
     Route: 061
     Dates: start: 20210629
  11. BACTROBAN [Concomitant]
     Active Substance: MUPIROCIN\MUPIROCIN CALCIUM
     Indication: Rash
     Dosage: 2 PERCENT, PRN
     Route: 061
     Dates: start: 20210331
  12. MYCOSTATIN BABY [Concomitant]
     Indication: Rash
     Dosage: UNK UNK, PRN
     Route: 061
     Dates: start: 20220303
  13. VITAMINS [Concomitant]
     Active Substance: VITAMINS
     Indication: Supplementation therapy
     Dosage: 1 TABLET
     Route: 048
     Dates: start: 20130320
  14. MIRALAX [Concomitant]
     Active Substance: POLYETHYLENE GLYCOL 3350
     Indication: Constipation
     Dosage: 17 GRAM
     Route: 048
     Dates: start: 20160420
  15. SODIUM CHLORIDE [Concomitant]
     Active Substance: SODIUM CHLORIDE
     Indication: Nasal congestion
     Dosage: 0.9 PERCENT, PRN
     Dates: start: 20190919

REACTIONS (2)
  - Acute respiratory failure [Unknown]
  - Disease progression [Unknown]

NARRATIVE: CASE EVENT DATE: 20220426
